FAERS Safety Report 20955525 (Version 1)
Quarter: 2022Q2

REPORT INFORMATION
  Report Type: Spontaneous
  Country: FR (occurrence: None)
  Receive Date: 20220614
  Receipt Date: 20220614
  Transmission Date: 20220720
  Serious: Yes (Hospitalization, Other)
  Sender: FDA-Public Use
  Company Number: 2022A209354

PATIENT
  Age: 68 Year
  Sex: Male
  Weight: 65 kg

DRUGS (7)
  1. TAGRISSO [Suspect]
     Active Substance: OSIMERTINIB
     Indication: Lung carcinoma cell type unspecified stage IV
     Route: 048
     Dates: start: 202011
  2. PANTOPRAZOLE [Concomitant]
     Active Substance: PANTOPRAZOLE
     Route: 048
  3. RIVAROXABAN [Concomitant]
     Active Substance: RIVAROXABAN
     Indication: Pulmonary embolism
     Route: 048
     Dates: start: 2019
  4. CALCIUM CARBONATE\CHOLECALCIFEROL [Concomitant]
     Active Substance: CALCIUM CARBONATE\CHOLECALCIFEROL
     Route: 048
  5. OXAZEPAM [Concomitant]
     Active Substance: OXAZEPAM
     Route: 048
  6. DENOSUMAB [Concomitant]
     Active Substance: DENOSUMAB
     Route: 058
     Dates: end: 202205
  7. ZOPICLONE [Concomitant]
     Active Substance: ZOPICLONE
     Route: 048

REACTIONS (2)
  - Ejection fraction decreased [Not Recovered/Not Resolved]
  - Left ventricular dysfunction [Not Recovered/Not Resolved]

NARRATIVE: CASE EVENT DATE: 20220501
